FAERS Safety Report 15245482 (Version 1)
Quarter: 2018Q3

REPORT INFORMATION
  Report Type: Spontaneous
  Country: US (occurrence: US)
  Receive Date: 20180713
  Receipt Date: 20180713
  Transmission Date: 20181010
  Serious: No
  Sender: FDA-Public Use
  Company Number: None

PATIENT
  Sex: Female

DRUGS (1)
  1. XELJANZ XR [Suspect]
     Active Substance: TOFACITINIB CITRATE
     Indication: RHEUMATOID ARTHRITIS
     Route: 058

REACTIONS (6)
  - Depression [None]
  - Nasopharyngitis [None]
  - Pyrexia [None]
  - Cardiac disorder [None]
  - Tendonitis [None]
  - Blood sodium decreased [None]
